FAERS Safety Report 7065312-4 (Version None)
Quarter: 2010Q4

REPORT INFORMATION
  Report Type: 
  Country: None (occurrence: None)
  Receive Date: 20101027
  Receipt Date: 20101020
  Transmission Date: 20110411
  Serious: Yes (Death)
  Sender: FDA-Public Use
  Company Number: GR-SANOFI-AVENTIS-2010SA064050

PATIENT

DRUGS (2)
  1. OXALIPLATIN [Suspect]
  2. CAPECITABINE [Suspect]

REACTIONS (1)
  - DEATH [None]
